FAERS Safety Report 5306974-9 (Version None)
Quarter: 2007Q2

REPORT INFORMATION
  Report Type: 
  Country: None (occurrence: None)
  Receive Date: 20070419
  Receipt Date: 20070410
  Transmission Date: 20071010
  Serious: Yes (Other)
  Sender: FDA-Public Use
  Company Number: OMPQ-PR-0704L-0203

PATIENT
  Age: 59 Year
  Sex: Female

DRUGS (7)
  1. OMNIPAQUE 140 [Suspect]
     Indication: HYPONATRAEMIA
     Dosage: SINGLE DOSE, I.V.
     Route: 042
  2. HYDROCHLOROTHIAZIDE [Concomitant]
  3. ATENOLOL [Concomitant]
  4. FOSINOPRIL SODIUM [Concomitant]
  5. METFORMIN HCL [Concomitant]
  6. ASPIRIN [Concomitant]
  7. SODIUM CHLORIDE [Concomitant]

REACTIONS (1)
  - POLYURIA [None]
